FAERS Safety Report 5338627-5 (Version None)
Quarter: 2007Q2

REPORT INFORMATION
  Report Type: 
  Country: None (occurrence: None)
  Receive Date: 20070322
  Receipt Date: 20060807
  Transmission Date: 20071010
  Serious: Yes (Other)
  Sender: FDA-Public Use
  Company Number: 200612751BCC

PATIENT
  Age: 77 Year
  Sex: Female
  Weight: 108.8633 kg

DRUGS (6)
  1. ALEVE [Suspect]
     Indication: ARTHRITIS
     Dosage: SEE IMAGE
     Route: 048
  2. ALEVE [Suspect]
     Indication: ARTHRITIS
     Dosage: SEE IMAGE
     Route: 048
     Dates: start: 20060601
  3. DIOVAN [Concomitant]
  4. MAXZIDE [Concomitant]
  5. DARVOCET [Concomitant]
  6. VITAMINS NOS [Concomitant]

REACTIONS (1)
  - GASTRIC HAEMORRHAGE [None]
